FAERS Safety Report 9572144 (Version 1)
Quarter: 2013Q4

REPORT INFORMATION
  Report Type: Spontaneous
  Country: GB (occurrence: GB)
  Receive Date: 20131001
  Receipt Date: 20131001
  Transmission Date: 20140711
  Serious: Yes (Life-Threatening)
  Sender: FDA-Public Use
  Company Number: GB-PFIZER INC-2013276639

PATIENT
  Age: 86 Year
  Sex: Female
  Weight: 63.5 kg

DRUGS (13)
  1. RAMIPRIL [Suspect]
     Indication: HYPERTENSION
     Dosage: 2.5 MG, 2X/DAY
     Route: 048
     Dates: start: 20130905, end: 20130912
  2. BISOPROLOL [Concomitant]
     Dosage: UNK
  3. FUROSEMIDE [Concomitant]
     Dosage: UNK
     Route: 065
  4. DOXAZOSIN [Concomitant]
     Dosage: UNK
  5. TRAMADOL [Concomitant]
     Dosage: UNK
  6. MOXONIDINE [Concomitant]
     Dosage: UNK
  7. AMLODIPINE [Concomitant]
     Dosage: UNK
  8. SODIUM BICARBONATE [Concomitant]
     Dosage: UNK
  9. DIPYRIDAMOLE [Concomitant]
     Dosage: UNK
  10. LANSOPRAZOLE [Concomitant]
     Dosage: UNK
  11. PRAVASTATIN [Concomitant]
     Dosage: UNK
  12. ASPIRIN [Concomitant]
     Dosage: UNK
  13. ALLOPURINOL [Concomitant]
     Dosage: UNK

REACTIONS (5)
  - Angioedema [Recovering/Resolving]
  - Dyspnoea [Recovering/Resolving]
  - Wheezing [Unknown]
  - Lip swelling [Recovering/Resolving]
  - Swollen tongue [Recovering/Resolving]
